FAERS Safety Report 7537873-X (Version None)
Quarter: 2011Q2

REPORT INFORMATION
  Report Type: 
  Country: None (occurrence: None)
  Receive Date: 20110609
  Receipt Date: 20110527
  Transmission Date: 20111010
  Serious: Yes (Hospitalization)
  Sender: FDA-Public Use
  Company Number: JP-BAYER-2011-048193

PATIENT
  Age: 83 Year
  Sex: Female

DRUGS (17)
  1. TARCEVA [Suspect]
     Indication: LUNG ADENOCARCINOMA
     Dosage: 100 MG, QD
     Route: 048
     Dates: start: 20110221, end: 20110409
  2. PROMAC [POLAPREZINC] [Concomitant]
     Dosage: UNK
     Dates: start: 20110405, end: 20110406
  3. ACETAMINOPHEN [Concomitant]
     Dosage: UNK
     Dates: start: 20110404, end: 20110405
  4. LOXONIN [Concomitant]
     Indication: TUMOUR ASSOCIATED FEVER
  5. ZOLPIDEM [Concomitant]
     Dosage: UNK
     Dates: start: 20110405, end: 20110406
  6. LYRICA [Concomitant]
     Dosage: UNK
     Dates: start: 20110405, end: 20110406
  7. I.V. SOLUTIONS [Concomitant]
     Dosage: UNK
     Dates: start: 20110408, end: 20110419
  8. CIPROFLOXACIN HCL [Concomitant]
     Indication: TUMOUR ASSOCIATED FEVER
     Dosage: UNK
     Dates: start: 20110404
  9. VFEND [Suspect]
     Indication: ASPERGILLOSIS
     Dosage: 200 MG, BID
     Route: 048
     Dates: start: 20110405, end: 20110406
  10. LASIX [Concomitant]
     Dosage: UNK
     Dates: start: 20110408, end: 20110410
  11. TARGOCID [Suspect]
     Indication: PNEUMONIA BACTERIAL
     Dosage: 200 MG, ONCE
     Route: 042
     Dates: start: 20110406, end: 20110406
  12. CONIEL [Concomitant]
     Dosage: UNK
     Dates: start: 20110405, end: 20110406
  13. NEUROTROPIN [Concomitant]
     Dosage: UNK
     Dates: start: 20110405, end: 20110406
  14. PURSENNID [Concomitant]
     Dosage: UNK
     Dates: start: 20110405, end: 20110406
  15. PREDNISOLONE [Concomitant]
     Dosage: UNK
     Dates: start: 20110409, end: 20110409
  16. NAPROXEN SODIUM [Suspect]
     Indication: PRODUCT USED FOR UNKNOWN INDICATION
     Dosage: 100 MG, BID
     Route: 048
     Dates: start: 20110405, end: 20110408
  17. LECICARBON [Concomitant]
     Dosage: UNK
     Dates: start: 20110404, end: 20110404

REACTIONS (1)
  - RHABDOMYOLYSIS [None]
